FAERS Safety Report 8509295-6 (Version None)
Quarter: 2012Q3

REPORT INFORMATION
  Report Type: 
  Country: None (occurrence: None)
  Receive Date: 20120713
  Receipt Date: 20120711
  Transmission Date: 20120928
  Serious: Yes (Disabling)
  Sender: FDA-Public Use
  Company Number: DE-ROCHE-1082553

PATIENT
  Age: 76 Year
  Sex: Male
  Weight: 74 kg

DRUGS (10)
  1. ASPIRIN [Concomitant]
  2. DEXAMETHASONE [Concomitant]
     Route: 048
     Dates: start: 20120601
  3. DEXAMETHASONE [Concomitant]
     Route: 048
     Dates: start: 20120603
  4. FLUVASTATIN [Concomitant]
  5. TAMSULOSIN HCL [Concomitant]
  6. BENDAMUSTINE HYDROCHLORIDE [Concomitant]
     Indication: B-CELL LYMPHOMA
     Route: 042
     Dates: start: 20120601
  7. DEXAMETHASONE [Concomitant]
     Route: 048
  8. MIRTAZAPINE [Concomitant]
  9. RAMIPRIL [Concomitant]
  10. MABTHERA [Suspect]
     Indication: B-CELL LYMPHOMA
     Route: 042
     Dates: start: 20120601

REACTIONS (1)
  - SLEEP DISORDER [None]
